FAERS Safety Report 13517765 (Version 6)
Quarter: 2019Q2

REPORT INFORMATION
  Report Type: Spontaneous
  Country: IN (occurrence: IN)
  Receive Date: 20170505
  Receipt Date: 20190606
  Transmission Date: 20190711
  Serious: Yes (Hospitalization, Other)
  Sender: FDA-Public Use
  Company Number: IN-PFIZER INC-2017024779

PATIENT
  Age: 57 Year
  Sex: Female

DRUGS (2)
  1. LETROZOLE. [Concomitant]
     Active Substance: LETROZOLE
     Dosage: 2.5 MG, UNK
     Route: 048
     Dates: start: 20161227
  2. PALBACE [Suspect]
     Active Substance: PALBOCICLIB
     Indication: BREAST CANCER METASTATIC
     Dosage: 125 MG, ONCE A DAY CYCLIC
     Route: 048
     Dates: start: 20161227

REACTIONS (20)
  - Dyspnoea [Unknown]
  - Fatigue [Not Recovered/Not Resolved]
  - Mood swings [Unknown]
  - Bone disorder [Unknown]
  - Back pain [Not Recovered/Not Resolved]
  - Nasal dryness [Unknown]
  - Crying [Unknown]
  - Productive cough [Unknown]
  - Psychiatric symptom [Unknown]
  - Nausea [Unknown]
  - Cyst [Unknown]
  - Musculoskeletal pain [Recovering/Resolving]
  - Full blood count decreased [Unknown]
  - Anxiety [Unknown]
  - Malaise [Unknown]
  - Neoplasm progression [Unknown]
  - Nasopharyngitis [Unknown]
  - Vulvovaginal pruritus [Not Recovered/Not Resolved]
  - Decreased appetite [Unknown]
  - Asthenia [Unknown]

NARRATIVE: CASE EVENT DATE: 201702
